FAERS Safety Report 6296427-6 (Version None)
Quarter: 2009Q3

REPORT INFORMATION
  Report Type: 
  Country: None (occurrence: None)
  Receive Date: 20090803
  Receipt Date: 20090803
  Transmission Date: 20100115
  Serious: No
  Sender: FDA-Public Use
  Company Number: None

PATIENT
  Age: 50 Year
  Sex: Female
  Weight: 105.6881 kg

DRUGS (1)
  1. OSMOPREP [Suspect]
     Indication: COLONOSCOPY
     Dosage: TAKE AS DIRECTED PO
     Route: 048
     Dates: start: 20090729, end: 20090730

REACTIONS (9)
  - ABDOMINAL DISTENSION [None]
  - ANURIA [None]
  - DIZZINESS [None]
  - MUSCLE SPASMS [None]
  - MYALGIA [None]
  - PARAESTHESIA [None]
  - PARAESTHESIA ORAL [None]
  - POST PROCEDURAL COMPLICATION [None]
  - RENAL PAIN [None]
